FAERS Safety Report 7600504-4 (Version None)
Quarter: 2011Q3

REPORT INFORMATION
  Report Type: 
  Country: None (occurrence: None)
  Receive Date: 20110711
  Receipt Date: 20110621
  Transmission Date: 20111222
  Serious: No
  Sender: FDA-Public Use
  Company Number: US-ABBOTT-11P-163-0734770-00

PATIENT
  Sex: Male
  Weight: 104.42 kg

DRUGS (3)
  1. ANDROGEL [Suspect]
     Dosage: 4 PUMPS DAILY
  2. VIAGRA [Concomitant]
     Indication: ERECTILE DYSFUNCTION
  3. ANDROGEL [Suspect]
     Indication: BLOOD TESTOSTERONE DECREASED
     Dosage: 2 PUMPS ONCE DAILY

REACTIONS (12)
  - FATIGUE [None]
  - DRUG INEFFECTIVE [None]
  - BLOOD TESTOSTERONE DECREASED [None]
  - DEPRESSION [None]
  - LIBIDO DECREASED [None]
  - ASTHENIA [None]
  - INCORRECT DOSE ADMINISTERED [None]
  - MEDICATION ERROR [None]
  - WEIGHT ABNORMAL [None]
  - ANGER [None]
  - PERSONALITY CHANGE [None]
  - ERECTILE DYSFUNCTION [None]
